FAERS Safety Report 7477580-5 (Version None)
Quarter: 2011Q2

REPORT INFORMATION
  Report Type: 
  Country: None (occurrence: None)
  Receive Date: 20110511
  Receipt Date: 20110511
  Transmission Date: 20111010
  Serious: Yes (Disabling)
  Sender: FDA-Public Use
  Company Number: None

PATIENT
  Sex: Male
  Weight: 122.5 kg

DRUGS (1)
  1. PACLITAXEL [Suspect]

REACTIONS (7)
  - CORONARY ARTERY THROMBOSIS [None]
  - CORONARY ARTERY DISSECTION [None]
  - POST PROCEDURAL MYOCARDIAL INFARCTION [None]
  - ACUTE MYOCARDIAL INFARCTION [None]
  - THROMBOSIS IN DEVICE [None]
  - DEVICE OCCLUSION [None]
  - CORONARY ARTERY OCCLUSION [None]
